FAERS Safety Report 11349705 (Version 4)
Quarter: 2015Q4

REPORT INFORMATION
  Report Type: Spontaneous
  Country: CA (occurrence: CA)
  Receive Date: 20150807
  Receipt Date: 20151110
  Transmission Date: 20160304
  Serious: Yes (Hospitalization, Other)
  Sender: FDA-Public Use
  Company Number: CA-ROCHE-1618517

PATIENT
  Age: 47 Year
  Sex: Female

DRUGS (13)
  1. XOLAIR [Suspect]
     Active Substance: OMALIZUMAB
     Indication: ASTHMA
     Route: 058
     Dates: start: 20150728
  2. AERIUS [Concomitant]
     Active Substance: DESLORATADINE
     Route: 065
     Dates: start: 20150728
  3. PREDNISONE. [Concomitant]
     Active Substance: PREDNISONE
  4. PENTOXIFYLLINE. [Concomitant]
     Active Substance: PENTOXIFYLLINE
  5. TORADOL [Concomitant]
     Active Substance: KETOROLAC TROMETHAMINE
     Route: 065
     Dates: start: 20150728
  6. MURO 128 [Concomitant]
     Active Substance: SODIUM CHLORIDE
  7. TORADOL [Concomitant]
     Active Substance: KETOROLAC TROMETHAMINE
     Route: 065
     Dates: start: 20150728
  8. SINGULAIR [Concomitant]
     Active Substance: MONTELUKAST SODIUM
     Route: 065
     Dates: start: 20150728
  9. COMBIVENT [Concomitant]
     Active Substance: ALBUTEROL SULFATE\IPRATROPIUM BROMIDE
     Route: 065
     Dates: start: 20150728
  10. HYZAAR [Concomitant]
     Active Substance: HYDROCHLOROTHIAZIDE\LOSARTAN POTASSIUM
     Route: 065
     Dates: start: 20150728
  11. ADVAIR HFA [Concomitant]
     Active Substance: FLUTICASONE PROPIONATE\SALMETEROL XINAFOATE
     Route: 065
     Dates: start: 20150728
  12. FLOVENT [Concomitant]
     Active Substance: FLUTICASONE PROPIONATE
     Route: 065
     Dates: start: 20150728
  13. FENTAL [Concomitant]
     Route: 065
     Dates: start: 20150728

REACTIONS (12)
  - Urticaria [Unknown]
  - Wheezing [Unknown]
  - Chest discomfort [Unknown]
  - Asthma [Unknown]
  - Dyspnoea [Recovered/Resolved]
  - Viral infection [Unknown]
  - Pruritus [Recovering/Resolving]
  - Eye pruritus [Recovering/Resolving]
  - Dizziness [Unknown]
  - Pancreatic disorder [Recovered/Resolved]
  - Blood immunoglobulin E increased [Unknown]
  - Hyperhidrosis [Recovering/Resolving]

NARRATIVE: CASE EVENT DATE: 20150728
